FAERS Safety Report 8765852 (Version 6)
Quarter: 2013Q2

REPORT INFORMATION
  Report Type: Spontaneous
  Country: US (occurrence: US)
  Receive Date: 20120904
  Receipt Date: 20130523
  Transmission Date: 20140414
  Serious: No
  Sender: FDA-Public Use
  Company Number: US-009507513-1208USA011781

PATIENT
  Sex: Female

DRUGS (8)
  1. VICTRELIS [Suspect]
     Indication: HEPATITIS C
     Dosage: UNK
     Route: 048
     Dates: start: 20120730
  2. VICTRELIS [Suspect]
     Dosage: 800 MG, Q6H
     Route: 048
     Dates: start: 20120801
  3. VICTRELIS [Suspect]
     Dosage: 800 MG, TID
     Route: 048
     Dates: start: 201208
  4. VICTRELIS [Suspect]
     Dosage: UNK
     Route: 048
     Dates: end: 20130326
  5. RIBASPHERE [Suspect]
     Indication: HEPATITIS C
     Dosage: UNK
     Dates: start: 20120611, end: 20130326
  6. PEGASYS [Suspect]
     Indication: HEPATITIS C
     Dosage: UNK
     Dates: start: 20120611, end: 20130326
  7. PAXIL [Concomitant]
     Indication: ANXIETY
  8. KLONOPIN [Concomitant]
     Indication: ANXIETY

REACTIONS (49)
  - Muscle twitching [Unknown]
  - Disorientation [Unknown]
  - Head injury [Unknown]
  - Dysmenorrhoea [Unknown]
  - Lip pain [Unknown]
  - Disturbance in attention [Unknown]
  - Rhinorrhoea [Unknown]
  - Abdominal pain upper [Unknown]
  - Depression [Unknown]
  - Mental disorder [Unknown]
  - Menstrual disorder [Unknown]
  - Dysmenorrhoea [Unknown]
  - Movement disorder [Recovered/Resolved]
  - Hyperhidrosis [Unknown]
  - Appetite disorder [Unknown]
  - Dizziness [Recovered/Resolved]
  - Nausea [Unknown]
  - Dysphonia [Recovering/Resolving]
  - Abdominal pain upper [Unknown]
  - Glossodynia [Unknown]
  - Diarrhoea [Recovered/Resolved]
  - Dizziness [Recovered/Resolved]
  - Vomiting [Unknown]
  - Feeling cold [Unknown]
  - Decreased appetite [Unknown]
  - Diarrhoea [Unknown]
  - Vomiting [Unknown]
  - Nausea [Unknown]
  - Dry mouth [Unknown]
  - Urticaria [Unknown]
  - Anaemia [Unknown]
  - Local swelling [Unknown]
  - Dysmenorrhoea [Unknown]
  - Vomiting [Unknown]
  - Rash generalised [Recovering/Resolving]
  - Urticaria [Recovering/Resolving]
  - Alopecia [Not Recovered/Not Resolved]
  - Scar [Not Recovered/Not Resolved]
  - Dry skin [Not Recovered/Not Resolved]
  - Decreased appetite [Not Recovered/Not Resolved]
  - Local swelling [Recovered/Resolved]
  - Nausea [Recovering/Resolving]
  - Diarrhoea [Not Recovered/Not Resolved]
  - Vomiting [Recovering/Resolving]
  - Mouth ulceration [Unknown]
  - Mental disorder [Unknown]
  - Overdose [Unknown]
  - Drug dose omission [Unknown]
  - Drug dose omission [Unknown]
